FAERS Safety Report 14940289 (Version 1)
Quarter: 2018Q2

REPORT INFORMATION
  Report Type: Report from Study
  Country: GR (occurrence: GR)
  Receive Date: 20180525
  Receipt Date: 20180525
  Transmission Date: 20180711
  Serious: Yes (Hospitalization)
  Sender: FDA-Public Use
  Company Number: GR-SA-2015SA200580

PATIENT
  Age: 53 Year
  Sex: Male
  Weight: 80 kg

DRUGS (11)
  1. TEGRETOL [Concomitant]
     Active Substance: CARBAMAZEPINE
     Indication: DRUG THERAPY
     Dosage: 1800 MG,QD
     Route: 048
     Dates: start: 2010, end: 20160509
  2. LYRICA [Concomitant]
     Active Substance: PREGABALIN
     Indication: DRUG THERAPY
     Dosage: 450 MG,QD
     Route: 048
     Dates: start: 2010, end: 20160404
  3. METHYLPREDNISOLONE. [Concomitant]
     Active Substance: METHYLPREDNISOLONE
     Indication: PROPHYLAXIS
     Dosage: 1250 MG,QD
     Route: 042
     Dates: start: 20151112, end: 20151116
  4. OMEPRAZOLE. [Concomitant]
     Active Substance: OMEPRAZOLE
     Indication: PROPHYLAXIS
     Dosage: 40 MG,QD
     Route: 042
     Dates: start: 20151112, end: 20151116
  5. ACICLOVIR [Concomitant]
     Active Substance: ACYCLOVIR
     Indication: PROPHYLAXIS
     Dosage: 800 MG,QD
     Route: 048
     Dates: start: 20151110, end: 20151210
  6. TEGRETOL [Concomitant]
     Active Substance: CARBAMAZEPINE
     Dosage: 400 MG,QD
     Route: 048
     Dates: start: 20160510
  7. LYRICA [Concomitant]
     Active Substance: PREGABALIN
     Dosage: 300 MG,QD
     Route: 048
     Dates: start: 20160405
  8. ALEMTUZUMAB [Suspect]
     Active Substance: ALEMTUZUMAB
     Dosage: 12 MG,QD
     Route: 041
     Dates: start: 20161116, end: 20161117
  9. DIMETINDENE MALEATE [Concomitant]
     Active Substance: DIMETHINDENE MALEATE
     Indication: PROPHYLAXIS
     Dosage: 4 MG,QD
     Route: 042
     Dates: start: 20151112, end: 20151116
  10. ALEMTUZUMAB [Suspect]
     Active Substance: ALEMTUZUMAB
     Dosage: 12 MG,QD
     Route: 041
     Dates: start: 20161119, end: 20161120
  11. ALEMTUZUMAB [Suspect]
     Active Substance: ALEMTUZUMAB
     Indication: MULTIPLE SCLEROSIS RELAPSE
     Dosage: 12 MG,QD
     Route: 041
     Dates: start: 20151112, end: 20151116

REACTIONS (3)
  - Rash macular [Recovered/Resolved]
  - Anaemia [Recovering/Resolving]
  - Blood creatine phosphokinase increased [Recovering/Resolving]

NARRATIVE: CASE EVENT DATE: 20151116
